FAERS Safety Report 5483239-6 (Version None)
Quarter: 2007Q4

REPORT INFORMATION
  Report Type: 
  Country: None (occurrence: None)
  Receive Date: 20071009
  Receipt Date: 20070925
  Transmission Date: 20080405
  Serious: Yes (Hospitalization, Other)
  Sender: FDA-Public Use
  Company Number: 2007JP003684

PATIENT
  Age: 85 Year
  Sex: Female

DRUGS (16)
  1. VESICARE [Suspect]
     Indication: HYPERTONIC BLADDER
     Dosage: 2.5 MG, ORAL; 2.5 MG, ORAL
     Route: 048
     Dates: start: 20070604, end: 20070601
  2. VESICARE [Suspect]
     Indication: HYPERTONIC BLADDER
     Dosage: 2.5 MG, ORAL; 2.5 MG, ORAL
     Route: 048
     Dates: start: 20070709, end: 20070803
  3. GRAMILIL(TIAPRIDE HYDROCHLORIDE) TABLET, 25MG [Suspect]
     Indication: CEREBRAL INFARCTION
     Dosage: 25 MG, BID, ORAL
     Route: 048
     Dates: start: 20070608, end: 20070803
  4. PAXIL [Suspect]
     Indication: DEPRESSION
     Dosage: 10 MG, UID/QD, ORAL
     Route: 048
     Dates: start: 20070604, end: 20070611
  5. BUFFERIN (ALUMINIUM GLYCINATE) TABLET [Concomitant]
  6. EPADEL (ETHYL ICOSAPENTATE) PER ORAL NOS [Concomitant]
  7. IMPROMEN (BROMPERIDOL) TABLET [Concomitant]
  8. ALFAROL (ALFACALCIDOL) CAPSULE [Concomitant]
  9. GEFANIL (GEFARNATE) CAPSULE [Concomitant]
  10. PURSENNID (SENNOSIDE A+B) TABLET [Concomitant]
  11. ADOFEED (FLURBIPROFEN) FORMULATION UNKNOWN [Concomitant]
  12. IBUPROFEN GRANULE [Concomitant]
  13. KITAZEMIN (MEQUITAZINE) FINE GRANULE [Concomitant]
  14. MARZULENE S (LEVOGLUTAMIDE, SODIUM GUALENATE) GRANULE [Concomitant]
  15. FLOMOX (CEFCAPENE PIVOXIL HYDROCHLORIDE) TABLET [Concomitant]
  16. SELBEX (TEPRENONE) FINE GRANULE [Concomitant]

REACTIONS (4)
  - CONJUNCTIVAL HYPERAEMIA [None]
  - PARKINSONISM [None]
  - RENAL FAILURE ACUTE [None]
  - RHABDOMYOLYSIS [None]
